FAERS Safety Report 4281127-4 (Version None)
Quarter: 2004Q1

REPORT INFORMATION
  Report Type: 
  Country: None (occurrence: None)
  Receive Date: 20040107
  Receipt Date: 20030512
  Transmission Date: 20041129
  Serious: Yes (Other)
  Sender: FDA-Public Use
  Company Number: 2003021204

PATIENT
  Sex: Female

DRUGS (14)
  1. PENICILLIN G PROCAINE [Suspect]
     Indication: ILL-DEFINED DISORDER
  2. BUTALBITAL W/ASPIRIN, CAFFEINE (ACETYLSALICYLIC ACID, CAFFEINE, BUTALB [Concomitant]
  3. CELECOXIB (CELECOXIB) [Concomitant]
  4. ALPRAZOLAM [Concomitant]
  5. PAROXETINE HCL [Concomitant]
  6. LEVOTHYROXINE SODIUM [Concomitant]
  7. ATENOLOL [Concomitant]
  8. ACETYLSALICYLIC ACID SRT [Concomitant]
  9. FOLIC ACID [Concomitant]
  10. ISOSORBIDE MONONITRATE [Concomitant]
  11. RANITIDINE HYDROCHLOIDE (RANITIDINE HYDROCHLORIDE) [Concomitant]
  12. CLOPIDOGREL BISULFATE [Concomitant]
  13. METOPROLOL TARTRATE [Concomitant]
  14. NIZATIDINE [Concomitant]

REACTIONS (1)
  - ANAPHYLACTIC REACTION [None]
